FAERS Safety Report 7990531-X (Version None)
Quarter: 2011Q4

REPORT INFORMATION
  Report Type: 
  Country: None (occurrence: None)
  Receive Date: 20111219
  Receipt Date: 20110111
  Transmission Date: 20120403
  Serious: No
  Sender: FDA-Public Use
  Company Number: US-ASTRAZENECA-2011SE01776

PATIENT
  Age: 35 Year
  Sex: Male
  Weight: 93 kg

DRUGS (1)
  1. CRESTOR [Suspect]
     Indication: HYPERCHOLESTEROLAEMIA
     Route: 048
     Dates: start: 20070101

REACTIONS (7)
  - LOW DENSITY LIPOPROTEIN INCREASED [None]
  - BLOOD TRIGLYCERIDES INCREASED [None]
  - LIVER FUNCTION TEST ABNORMAL [None]
  - DRUG INEFFECTIVE [None]
  - INTERVERTEBRAL DISC DISORDER [None]
  - BLOOD CHOLESTEROL INCREASED [None]
  - INTERVERTEBRAL DISC DEGENERATION [None]
